FAERS Safety Report 4786714-2 (Version None)
Quarter: 2005Q4

REPORT INFORMATION
  Report Type: 
  Country: None (occurrence: None)
  Receive Date: 20051003
  Receipt Date: 20051003
  Transmission Date: 20060501
  Serious: Yes (Hospitalization)
  Sender: FDA-Public Use
  Company Number: None

PATIENT
  Sex: Female
  Weight: 96.1626 kg

DRUGS (2)
  1. XELODA [Suspect]
     Indication: BREAST CANCER METASTATIC
     Dosage: 1500MG BID X 14 DAYS PO
     Route: 048
     Dates: start: 20041123, end: 20050809
  2. AREDIA [Concomitant]

REACTIONS (5)
  - ABDOMINAL PAIN [None]
  - ERUCTATION [None]
  - FLATULENCE [None]
  - GASTROINTESTINAL DISORDER [None]
  - THROMBOSIS [None]
